FAERS Safety Report 14341369 (Version 1)
Quarter: 2018Q1

REPORT INFORMATION
  Report Type: Spontaneous
  Country: NL (occurrence: NL)
  Receive Date: 20180102
  Receipt Date: 20180102
  Transmission Date: 20180509
  Serious: Yes (Other)
  Sender: FDA-Public Use
  Company Number: NL-ACCORD-062463

PATIENT
  Age: 68 Year
  Sex: Male

DRUGS (5)
  1. ERBITUX [Concomitant]
     Active Substance: CETUXIMAB
     Dosage: LOADING DOSE
  2. DEXAMETHASONE. [Concomitant]
     Active Substance: DEXAMETHASONE
     Route: 048
  3. DEPOCYT [Suspect]
     Active Substance: CYTARABINE
     Indication: SQUAMOUS CELL CARCINOMA
     Dosage: LIPOSOME INJECTION 50 MG EVERY 2 WEEKS
     Route: 037
  4. METHOTREXATE. [Suspect]
     Active Substance: METHOTREXATE
     Indication: SQUAMOUS CELL CARCINOMA
     Dosage: 12 MG EVERY 2 WEEKS
     Route: 037
  5. ERBITUX [Concomitant]
     Active Substance: CETUXIMAB
     Dosage: WEEKLY STANDARD DOSE
     Route: 048

REACTIONS (3)
  - Meningitis chemical [Unknown]
  - Dehydration [Unknown]
  - Off label use [Unknown]
